FAERS Safety Report 7929921-X (Version None)
Quarter: 2011Q4

REPORT INFORMATION
  Report Type: 
  Country: None (occurrence: None)
  Receive Date: 20111121
  Receipt Date: 20111117
  Transmission Date: 20120403
  Serious: Yes (Other)
  Sender: FDA-Public Use
  Company Number: DK-PFIZER INC-2010157465

PATIENT
  Age: 64 Year
  Sex: Male

DRUGS (2)
  1. SUTENT [Suspect]
     Indication: RENAL CANCER
     Dosage: 50 MG 1X/DAY
     Route: 048
     Dates: start: 20100212, end: 20100621
  2. ZOMETA [Suspect]
     Indication: METASTASES TO BONE
     Dosage: 4 MG, WEEKLY
     Route: 042
     Dates: start: 20100212, end: 20100510

REACTIONS (1)
  - OSTEONECROSIS OF JAW [None]
